FAERS Safety Report 7747681-2 (Version None)
Quarter: 2011Q3

REPORT INFORMATION
  Report Type: 
  Country: None (occurrence: None)
  Receive Date: 20110909
  Receipt Date: 20110901
  Transmission Date: 20111222
  Serious: Yes (Hospitalization)
  Sender: FDA-Public Use
  Company Number: FRP11000259

PATIENT
  Age: 60 Year
  Sex: Female

DRUGS (3)
  1. ACETAMINOPHEN [Concomitant]
  2. ACTONEL [Suspect]
     Indication: FEMUR FRACTURE
     Dosage: 75 MG, 2 CD/MONTH, ORAL
     Route: 048
     Dates: start: 20110101, end: 20110101
  3. CORTICOSTEROID NOS (CORTICOSTEROID NOS) [Concomitant]

REACTIONS (5)
  - C-REACTIVE PROTEIN INCREASED [None]
  - DEPRESSED LEVEL OF CONSCIOUSNESS [None]
  - PYREXIA [None]
  - ACUTE PHASE REACTION [None]
  - RED BLOOD CELL SEDIMENTATION RATE INCREASED [None]
